FAERS Safety Report 13669488 (Version 2)
Quarter: 2017Q3

REPORT INFORMATION
  Report Type: Report from Study
  Country: US (occurrence: US)
  Receive Date: 20170620
  Receipt Date: 20170714
  Transmission Date: 20171127
  Serious: Yes (Hospitalization, Other)
  Sender: FDA-Public Use
  Company Number: US-GILEAD-2017-0278949

PATIENT
  Age: 41 Year
  Sex: Male

DRUGS (2)
  1. ADCIRCA [Concomitant]
     Active Substance: TADALAFIL
  2. AMBRISENTAN [Suspect]
     Active Substance: AMBRISENTAN
     Indication: PRODUCT USED FOR UNKNOWN INDICATION
     Dosage: 10 MG, QD
     Route: 065
     Dates: start: 20120206

REACTIONS (6)
  - Sleep apnoea syndrome [Unknown]
  - Hernia [Unknown]
  - Blood pressure abnormal [Not Recovered/Not Resolved]
  - Dialysis [Unknown]
  - Cardiac disorder [Unknown]
  - Lung disorder [Unknown]
